FAERS Safety Report 11739650 (Version 6)
Quarter: 2016Q1

REPORT INFORMATION
  Report Type: Spontaneous
  Country: JP (occurrence: JP)
  Receive Date: 20151113
  Receipt Date: 20160301
  Transmission Date: 20160525
  Serious: Yes (Hospitalization, Disabling, Other)
  Sender: FDA-Public Use
  Company Number: PHJP2015JP019825

PATIENT
  Age: 70 Year
  Sex: Male
  Weight: 68 kg

DRUGS (10)
  1. BOSUTINIB [Suspect]
     Active Substance: BOSUTINIB
     Indication: CHRONIC MYELOID LEUKAEMIA
     Dosage: UNK
     Route: 065
  2. MAINTATE [Concomitant]
     Active Substance: BISOPROLOL FUMARATE
     Indication: HYPERTENSIVE HEART DISEASE
     Dosage: 2.5 MG, QD
     Route: 048
     Dates: start: 20120418
  3. TASIGNA [Suspect]
     Active Substance: NILOTINIB
     Indication: CHRONIC MYELOID LEUKAEMIA
     Dosage: 400 MG, BID
     Route: 048
     Dates: start: 20100524, end: 20110614
  4. ZYLORIC [Concomitant]
     Active Substance: ALLOPURINOL
     Indication: HYPERURICAEMIA
     Dosage: 100 MG, QD
     Route: 048
  5. LIPITOR [Concomitant]
     Active Substance: ATORVASTATIN CALCIUM
     Indication: HYPERLIPIDAEMIA
     Dosage: UNK
     Route: 065
     Dates: start: 20120112, end: 201410
  6. TASIGNA [Suspect]
     Active Substance: NILOTINIB
     Dosage: 300 MG, BID
     Route: 048
     Dates: start: 20110615, end: 20130828
  7. DASATINIB [Suspect]
     Active Substance: DASATINIB
     Indication: CHRONIC MYELOID LEUKAEMIA
     Dosage: UNK
     Route: 065
  8. TASIGNA [Suspect]
     Active Substance: NILOTINIB
     Dosage: 300 MG, BID
     Route: 048
     Dates: start: 20131211, end: 20150305
  9. TASIGNA [Suspect]
     Active Substance: NILOTINIB
     Dosage: 300 MG, BID
     Route: 048
     Dates: start: 20150401, end: 20151107
  10. SPRYCEL [Concomitant]
     Active Substance: DASATINIB
     Indication: CHRONIC MYELOID LEUKAEMIA
     Dosage: 100 MG, QD
     Route: 048
     Dates: start: 20130829, end: 20131105

REACTIONS (31)
  - Cellulitis [Not Recovered/Not Resolved]
  - Nail discolouration [Unknown]
  - Cardiac failure [Unknown]
  - Rash [Not Recovered/Not Resolved]
  - Retinal artery occlusion [Not Recovered/Not Resolved]
  - Platelet count decreased [Recovering/Resolving]
  - Blood alkaline phosphatase increased [Recovered/Resolved]
  - Gangrene [Not Recovered/Not Resolved]
  - Necrosis [Not Recovered/Not Resolved]
  - Vascular calcification [Unknown]
  - Furuncle [Unknown]
  - Skin ulcer [Unknown]
  - Oedema peripheral [Unknown]
  - Lymphocyte count decreased [Not Recovered/Not Resolved]
  - Neutrophil count increased [Recovering/Resolving]
  - Peripheral artery occlusion [Not Recovered/Not Resolved]
  - Spinal deformity [Unknown]
  - Intermittent claudication [Unknown]
  - Haemoglobin decreased [Not Recovered/Not Resolved]
  - Gait disturbance [Unknown]
  - Eosinophil count increased [Unknown]
  - Hypoaesthesia [Unknown]
  - Purulence [Unknown]
  - Cellulitis [Recovered/Resolved]
  - White blood cell count increased [Recovering/Resolving]
  - Pleural effusion [Recovering/Resolving]
  - Delirium [Unknown]
  - Venous occlusion [Unknown]
  - Sciatica [Unknown]
  - Diarrhoea [Unknown]
  - Oedema [Unknown]

NARRATIVE: CASE EVENT DATE: 20100906
